FAERS Safety Report 21739604 (Version 1)
Quarter: 2022Q4

REPORT INFORMATION
  Report Type: Spontaneous
  Country: US (occurrence: None)
  Receive Date: 20221215
  Receipt Date: 20221215
  Transmission Date: 20230112
  Serious: No
  Sender: FDA-Public Use
  Company Number: None

PATIENT
  Sex: Male

DRUGS (1)
  1. HUMIRA [Suspect]
     Active Substance: ADALIMUMAB
     Indication: Inflammatory bowel disease
     Dosage: FREQUENCY : WEEKLY;?
     Route: 058
     Dates: start: 20220908

REACTIONS (5)
  - Inflammatory bowel disease [None]
  - Condition aggravated [None]
  - Pain [None]
  - Haematemesis [None]
  - Thrombosis [None]
